FAERS Safety Report 5138648-1 (Version None)
Quarter: 2006Q4

REPORT INFORMATION
  Report Type: 
  Country: None (occurrence: None)
  Receive Date: 20061024
  Receipt Date: 20061009
  Transmission Date: 20070319
  Serious: Yes (Hospitalization)
  Sender: FDA-Public Use
  Company Number: 2006001948

PATIENT
  Age: 52 Year
  Sex: Female
  Weight: 56.1 kg

DRUGS (6)
  1. ERLOTINIB                          (TABLET) [Suspect]
     Indication: NON-SMALL CELL LUNG CANCER
     Dosage: 150 MG (QD), ORAL
     Route: 048
     Dates: start: 20060629, end: 20061003
  2. CARBOPLATIN [Suspect]
     Indication: NON-SMALL CELL LUNG CANCER
     Dosage: AUC 6 (DAY 1, X 6 CYCLES), INTRAVENOUS
     Route: 042
     Dates: start: 20060629
  3. PACLITAXEL [Suspect]
     Indication: NON-SMALL CELL LUNG CANCER
     Dosage: 200 MG/M^2 (DAY 1, X 6 CYCLES), INTRAVENOUS
     Route: 042
     Dates: start: 20060629
  4. AMITRIPTYLINE HCL [Concomitant]
  5. FLUOXETINE [Concomitant]
  6. SUMATRIPTAN SUCCINATE [Concomitant]

REACTIONS (4)
  - DIARRHOEA [None]
  - GRANULOCYTES ABNORMAL [None]
  - NEUTROPHIL COUNT ABNORMAL [None]
  - PULMONARY EMBOLISM [None]
